FAERS Safety Report 9009772 (Version 1)
Quarter: 2013Q1

REPORT INFORMATION
  Report Type: Spontaneous
  Country: US (occurrence: US)
  Receive Date: 20130110
  Receipt Date: 20130110
  Transmission Date: 20140127
  Serious: Yes (Death)
  Sender: FDA-Public Use
  Company Number: US-PFIZER INC-2013006131

PATIENT
  Age: 51 Year
  Sex: Female

DRUGS (6)
  1. LORAZEPAM [Suspect]
     Dosage: UNK
  2. GABAPENTIN [Suspect]
     Dosage: UNK
  3. ATORVASTATIN CALCIUM [Suspect]
     Dosage: UNK
  4. INSULIN [Suspect]
     Dosage: UNK
  5. QUETIAPINE [Suspect]
     Dosage: UNK
  6. CARVEDILOL [Suspect]
     Dosage: UNK

REACTIONS (1)
  - Completed suicide [Fatal]
